FAERS Safety Report 20601348 (Version 2)
Quarter: 2022Q3

REPORT INFORMATION
  Report Type: Report from Study
  Country: US (occurrence: US)
  Receive Date: 20220316
  Receipt Date: 20220831
  Transmission Date: 20221026
  Serious: Yes (Hospitalization, Other)
  Sender: FDA-Public Use
  Company Number: US-GILEAD-2022-0564594

PATIENT
  Age: 19 Year
  Sex: Male

DRUGS (30)
  1. AZTREONAM LYSINE [Suspect]
     Active Substance: AZTREONAM LYSINE
     Indication: Cystic fibrosis gastrointestinal disease
     Dosage: 1 VIAL, 28 DAYS ON AND 28 DAYS OFF
     Route: 055
     Dates: start: 20211119
  2. AZTREONAM LYSINE [Suspect]
     Active Substance: AZTREONAM LYSINE
     Indication: Cystic fibrosis
  3. ALBUTEROL [Concomitant]
     Active Substance: ALBUTEROL
  4. CETIRIZINE [Concomitant]
     Active Substance: CETIRIZINE HYDROCHLORIDE
  5. OMEPRAZOLE [Concomitant]
     Active Substance: OMEPRAZOLE
  6. PULMOZYME [Concomitant]
     Active Substance: DORNASE ALFA
  7. SODIUM CHLORIDE [Concomitant]
     Active Substance: SODIUM CHLORIDE
  8. TRIAMCINOLON [TRIAMCINOLONE ACETONIDE] [Concomitant]
  9. TRIKAFTA [Concomitant]
     Active Substance: ELEXACAFTOR\IVACAFTOR\TEZACAFTOR
  10. URSODIOL [Concomitant]
     Active Substance: URSODIOL
  11. ZENPEP [Concomitant]
     Active Substance: PANCRELIPASE AMYLASE\PANCRELIPASE LIPASE\PANCRELIPASE PROTEASE
  12. ZYRTEC [Concomitant]
     Active Substance: CETIRIZINE HYDROCHLORIDE
  13. DOCUSATE SODIUM [Concomitant]
     Active Substance: DOCUSATE SODIUM
  14. FAMOTIDINE [Concomitant]
     Active Substance: FAMOTIDINE
  15. SODIUM CHLORIDE [Concomitant]
     Active Substance: SODIUM CHLORIDE
  16. LEVOFLOXACIN [Concomitant]
     Active Substance: LEVOFLOXACIN
  17. PREDNISONE [Concomitant]
     Active Substance: PREDNISONE
  18. SENNA LEAF [Concomitant]
     Active Substance: SENNA LEAF
  19. SULFAMETHOXAZOLE\TRIMETHOPRIM [Concomitant]
     Active Substance: SULFAMETHOXAZOLE\TRIMETHOPRIM
  20. TRIAMCINOLONE [Concomitant]
     Active Substance: TRIAMCINOLONE
  21. VITAMIN D2 [Concomitant]
     Active Substance: ERGOCALCIFEROL
  22. VORICONAZOLE [Concomitant]
     Active Substance: VORICONAZOLE
  23. ADMELOG [Concomitant]
     Active Substance: INSULIN LISPRO
  24. BISACODYL [Concomitant]
     Active Substance: BISACODYL
  25. FULPHILA [PEGFILGRASTIM] [Concomitant]
  26. GERI KOT [Concomitant]
  27. GLUCAGEN [Concomitant]
     Active Substance: GLUCAGON HYDROCHLORIDE
  28. VITAMIN D NOS [Concomitant]
     Active Substance: VITAMIN D NOS
  29. XARELTO [Concomitant]
     Active Substance: RIVAROXABAN
  30. ZIEXTENZO [Concomitant]
     Active Substance: PEGFILGRASTIM-BMEZ

REACTIONS (2)
  - Neoplasm malignant [Unknown]
  - Cystic fibrosis [Unknown]
